FAERS Safety Report 8418258-0 (Version None)
Quarter: 2012Q2

REPORT INFORMATION
  Report Type: 
  Country: None (occurrence: None)
  Receive Date: 20120607
  Receipt Date: 20120601
  Transmission Date: 20120825
  Serious: Yes (Other)
  Sender: FDA-Public Use
  Company Number: US-COVIDIEN/TYCO HEALTHCARE/MALLINCKRODT-T201202461

PATIENT
  Age: 32 Year
  Sex: Male

DRUGS (2)
  1. EXALGO [Suspect]
     Indication: MIGRAINE
     Dosage: UNK
     Dates: start: 20120404
  2. APAP/DECONGESTANT/DEXTROMETHORPHAN [Suspect]
     Indication: INSOMNIA
     Dosage: TOOK TWO MOUTHFULS

REACTIONS (3)
  - HYPERHIDROSIS [None]
  - AGITATION [None]
  - INTENTIONAL DRUG MISUSE [None]
